FAERS Safety Report 15451494 (Version 1)
Quarter: 2018Q3

REPORT INFORMATION
  Report Type: Spontaneous
  Country: US (occurrence: US)
  Receive Date: 20180927
  Receipt Date: 20180927
  Transmission Date: 20181010
  Serious: Yes (Hospitalization)
  Sender: FDA-Public Use
  Company Number: None

PATIENT
  Age: 54 Year
  Sex: Female

DRUGS (19)
  1. TALTZ [Suspect]
     Active Substance: IXEKIZUMAB
     Indication: PSORIATIC ARTHROPATHY
     Dosage: ?          OTHER FREQUENCY:Q4W;?
     Route: 058
     Dates: start: 20180512
  2. FUROSEMIDE. [Concomitant]
     Active Substance: FUROSEMIDE
  3. STELARA [Concomitant]
     Active Substance: USTEKINUMAB
  4. METHYLPRED [Concomitant]
     Active Substance: METHYLPREDNISOLONE
  5. DOXYCYCL HYC [Concomitant]
  6. CEFDINIR. [Concomitant]
     Active Substance: CEFDINIR
  7. GABAPENTIN. [Concomitant]
     Active Substance: GABAPENTIN
  8. HYDROCO/APAP [Concomitant]
     Active Substance: ACETAMINOPHEN\HYDROCODONE
  9. LOVASTATIN. [Concomitant]
     Active Substance: LOVASTATIN
  10. HYDROXYZ HCL [Concomitant]
     Active Substance: HYDROXYZINE HYDROCHLORIDE
  11. LOSARTAN POT [Concomitant]
     Active Substance: LOSARTAN POTASSIUM
  12. LEVOTHYROXIN [Concomitant]
     Active Substance: LEVOTHYROXINE
  13. ASPIRIN. [Concomitant]
     Active Substance: ASPIRIN
  14. VITAMIN D [Concomitant]
     Active Substance: CHOLECALCIFEROL
  15. PREDNISONE. [Concomitant]
     Active Substance: PREDNISONE
  16. CARISOPRODOL. [Concomitant]
     Active Substance: CARISOPRODOL
  17. FOLIC ACID. [Concomitant]
     Active Substance: FOLIC ACID
  18. ATENOLOL. [Concomitant]
     Active Substance: ATENOLOL
  19. LYRICA [Concomitant]
     Active Substance: PREGABALIN

REACTIONS (1)
  - Spinal cord disorder [None]

NARRATIVE: CASE EVENT DATE: 20180913
